FAERS Safety Report 24413171 (Version 1)
Quarter: 2024Q4

REPORT INFORMATION
  Report Type: Spontaneous
  Country: US (occurrence: US)
  Receive Date: 20241008
  Receipt Date: 20241008
  Transmission Date: 20250115
  Serious: No
  Sender: SANOFI AVENTIS
  Company Number: US-SANOFI-02236394

PATIENT
  Age: 89 Year
  Sex: Female

DRUGS (2)
  1. LANTUS SOLOSTAR [Suspect]
     Active Substance: INSULIN GLARGINE
     Indication: Type 2 diabetes mellitus
     Dosage: 10 U, QD
     Route: 058
     Dates: start: 202409
  2. ZOLPIDEM TARTRATE [Suspect]
     Active Substance: ZOLPIDEM TARTRATE
     Dosage: UNK

REACTIONS (4)
  - Nausea [Not Recovered/Not Resolved]
  - Somnolence [Not Recovered/Not Resolved]
  - Hangover [Unknown]
  - Blood glucose abnormal [Unknown]

NARRATIVE: CASE EVENT DATE: 20240901
